FAERS Safety Report 10524688 (Version 1)
Quarter: 2014Q4

REPORT INFORMATION
  Report Type: Spontaneous
  Country: US (occurrence: US)
  Receive Date: 20141017
  Receipt Date: 20141017
  Transmission Date: 20150528
  Serious: Yes (Life-Threatening, Hospitalization, Disabling)
  Sender: FDA-Public Use
  Company Number: US-BAYER-2014-150076

PATIENT
  Sex: Female

DRUGS (1)
  1. MIRENA [Suspect]
     Active Substance: LEVONORGESTREL
     Indication: CONTRACEPTION
     Dosage: 20 MCG/24HR, CONT
     Route: 015
     Dates: start: 20081015, end: 20130920

REACTIONS (22)
  - Hysterectomy [Not Recovered/Not Resolved]
  - Abdominal pain upper [None]
  - Abdominal adhesions [None]
  - Device defective [None]
  - Infertility female [None]
  - Fallopian tube enlargement [None]
  - Deformity [Not Recovered/Not Resolved]
  - Urinary tract infection [None]
  - Tenderness [None]
  - Anhedonia [None]
  - Anxiety [None]
  - Tubo-ovarian abscess [None]
  - Colitis [None]
  - Menorrhagia [None]
  - Back pain [None]
  - Emotional distress [None]
  - Psychogenic pain disorder [None]
  - Injury [Not Recovered/Not Resolved]
  - Pelvic infection [Not Recovered/Not Resolved]
  - Hormone level abnormal [None]
  - Fear of disease [None]
  - Pelvic pain [Not Recovered/Not Resolved]

NARRATIVE: CASE EVENT DATE: 2013
